FAERS Safety Report 25042182 (Version 4)
Quarter: 2025Q2

REPORT INFORMATION
  Report Type: Spontaneous
  Country: DE (occurrence: DE)
  Receive Date: 20250305
  Receipt Date: 20250509
  Transmission Date: 20250716
  Serious: Yes (Hospitalization)
  Sender: MYLAN
  Company Number: DE-002147023-NVSC2025DE027225

PATIENT
  Sex: Male
  Weight: 85 kg

DRUGS (6)
  1. METHOTREXATE [Suspect]
     Active Substance: METHOTREXATE
     Indication: Joint swelling
  2. RUXOLITINIB [Suspect]
     Active Substance: RUXOLITINIB
     Indication: Polycythaemia vera
  3. RUXOLITINIB [Suspect]
     Active Substance: RUXOLITINIB
     Dosage: 10 MILLIGRAM, QD (10 MG (IN THE EVENING)
     Dates: start: 2017
  4. RUXOLITINIB [Suspect]
     Active Substance: RUXOLITINIB
     Dosage: 10 MILLIGRAM, QD (10 MG (IN THE EVENING)
  5. DULOXETINE [Concomitant]
     Active Substance: DULOXETINE
     Indication: Depression
  6. BEMPEDOIC ACID [Concomitant]
     Active Substance: BEMPEDOIC ACID
     Indication: Dyslipidaemia

REACTIONS (6)
  - Skin ulcer [Recovered/Resolved]
  - Joint swelling [Recovered/Resolved]
  - Rheumatoid factor increased [Recovered/Resolved]
  - Peripheral swelling [Recovered/Resolved]
  - Dyslipidaemia [Unknown]
  - Dermatitis [Unknown]

NARRATIVE: CASE EVENT DATE: 20170101
